FAERS Safety Report 15647710 (Version 1)
Quarter: 2018Q4

REPORT INFORMATION
  Report Type: Spontaneous
  Country: US (occurrence: US)
  Receive Date: 20181122
  Receipt Date: 20181122
  Transmission Date: 20190205
  Serious: No
  Sender: FDA-Public Use
  Company Number: US-GLAXOSMITHKLINE-US2018208829

PATIENT
  Age: 82 Year
  Sex: Female

DRUGS (1)
  1. DICLOFENAC SODIUM GEL [Suspect]
     Active Substance: DICLOFENAC SODIUM
     Indication: GROIN PAIN
     Dosage: UNK

REACTIONS (3)
  - Product administered at inappropriate site [Unknown]
  - Drug ineffective for unapproved indication [Unknown]
  - Off label use [Unknown]
